FAERS Safety Report 19926457 (Version 2)
Quarter: 2021Q4

REPORT INFORMATION
  Report Type: Spontaneous
  Country: IT (occurrence: IT)
  Receive Date: 20211006
  Receipt Date: 20211012
  Transmission Date: 20220303
  Serious: Yes (Death, Other)
  Sender: FDA-Public Use
  Company Number: IT-TEVA-2021-IT-1960998

PATIENT
  Age: 50 Year
  Sex: Female

DRUGS (6)
  1. CARBOPLATIN [Suspect]
     Active Substance: CARBOPLATIN
     Indication: Renal cell carcinoma
     Dosage: AUC 5 MG/ML/MIN
     Route: 065
     Dates: start: 201502
  2. GEMCITABINE [Suspect]
     Active Substance: GEMCITABINE
     Indication: Renal cell carcinoma
     Dosage: ON DAY 1 AND 8
     Route: 065
     Dates: start: 201502
  3. CISPLATIN [Suspect]
     Active Substance: CISPLATIN
     Indication: Renal cell carcinoma
     Route: 065
     Dates: start: 201502
  4. BEVACIZUMAB [Suspect]
     Active Substance: BEVACIZUMAB
     Indication: Renal cell carcinoma
     Route: 065
     Dates: start: 201502
  5. TRAMETINIB [Suspect]
     Active Substance: TRAMETINIB
     Indication: Renal cell carcinoma
     Route: 065
  6. DABRAFENIB [Suspect]
     Active Substance: DABRAFENIB
     Indication: Renal cell carcinoma
     Route: 065

REACTIONS (3)
  - Febrile neutropenia [Unknown]
  - Rash [Unknown]
  - Off label use [Unknown]

NARRATIVE: CASE EVENT DATE: 20150101
